FAERS Safety Report 7974017-4 (Version None)
Quarter: 2011Q4

REPORT INFORMATION
  Report Type: 
  Country: None (occurrence: None)
  Receive Date: 20111213
  Receipt Date: 20111206
  Transmission Date: 20120403
  Serious: Yes (Other)
  Sender: FDA-Public Use
  Company Number: US-GLAXOSMITHKLINE-A0957822A

PATIENT
  Sex: Female

DRUGS (2)
  1. WELLBUTRIN [Suspect]
     Indication: PRODUCT USED FOR UNKNOWN INDICATION
     Dosage: 100MG UNKNOWN
     Route: 065
     Dates: start: 20110214
  2. VESICARE [Suspect]
     Indication: PRODUCT USED FOR UNKNOWN INDICATION
     Dosage: 10MG UNKNOWN
     Route: 065
     Dates: start: 20110214

REACTIONS (1)
  - CEREBROVASCULAR ACCIDENT [None]
